FAERS Safety Report 23198411 (Version 1)
Quarter: 2023Q4

REPORT INFORMATION
  Report Type: Spontaneous
  Country: BR (occurrence: BR)
  Receive Date: 20231117
  Receipt Date: 20231117
  Transmission Date: 20240110
  Serious: Yes (Other)
  Sender: FDA-Public Use
  Company Number: BR-PFIZER INC-PV202200002961

PATIENT
  Age: 72 Year
  Sex: Male

DRUGS (1)
  1. SUTENT [Suspect]
     Active Substance: SUNITINIB MALATE
     Dosage: UNK
     Dates: start: 20220523

REACTIONS (15)
  - Anuria [Unknown]
  - Dyspnoea [Unknown]
  - Influenza [Unknown]
  - Nausea [Unknown]
  - Decreased appetite [Unknown]
  - Eye swelling [Unknown]
  - Vomiting [Unknown]
  - Gastrointestinal disorder [Unknown]
  - Illness [Unknown]
  - Insomnia [Unknown]
  - Abdominal distension [Unknown]
  - Asthenia [Unknown]
  - Infection [Unknown]
  - Constipation [Unknown]
  - Abdominal pain [Unknown]
